FAERS Safety Report 8457266-0 (Version None)
Quarter: 2012Q2

REPORT INFORMATION
  Report Type: 
  Country: None (occurrence: None)
  Receive Date: 20120621
  Receipt Date: 20120614
  Transmission Date: 20120825
  Serious: Yes (Hospitalization, Disabling, Other)
  Sender: FDA-Public Use
  Company Number: DK-ROCHE-1056888

PATIENT
  Sex: Male

DRUGS (3)
  1. LUCENTIS [Suspect]
     Indication: RETINAL VEIN OCCLUSION
     Dosage: 10 MG/ML
     Route: 050
  2. LUCENTIS [Suspect]
     Dosage: 10 MG/ML
     Route: 050
  3. LUCENTIS [Suspect]
     Dosage: 10 MG/ML
     Route: 050
     Dates: start: 20100317

REACTIONS (7)
  - THROMBOTIC MICROANGIOPATHY [None]
  - GLAUCOMA [None]
  - OCULAR ISCHAEMIC SYNDROME [None]
  - CATARACT [None]
  - RENAL FAILURE [None]
  - HYPERTENSION [None]
  - VITREOUS HAEMORRHAGE [None]
